FAERS Safety Report 5781990-1 (Version None)
Quarter: 2008Q2

REPORT INFORMATION
  Report Type: 
  Country: None (occurrence: None)
  Receive Date: 20080623
  Receipt Date: 20080321
  Transmission Date: 20081010
  Serious: No
  Sender: FDA-Public Use
  Company Number: US-ASTRAZENECA-2008UW05856

PATIENT
  Age: 65 Year
  Sex: Female
  Weight: 49.9 kg

DRUGS (5)
  1. RHINOCORT [Suspect]
     Indication: NASOPHARYNGITIS
     Route: 045
     Dates: start: 20080201
  2. RHINOCORT [Suspect]
     Indication: POSTNASAL DRIP
     Route: 045
     Dates: start: 20080201
  3. MUCINEX [Concomitant]
  4. ACTONEL [Concomitant]
  5. ATIVAN [Concomitant]

REACTIONS (6)
  - CHEST DISCOMFORT [None]
  - COUGH [None]
  - MUSCLE TIGHTNESS [None]
  - PAIN [None]
  - POSTNASAL DRIP [None]
  - PYREXIA [None]
